FAERS Safety Report 5022513-4 (Version None)
Quarter: 2006Q2

REPORT INFORMATION
  Report Type: 
  Country: None (occurrence: None)
  Receive Date: 20060605
  Receipt Date: 20060511
  Transmission Date: 20061013
  Serious: Yes (Hospitalization)
  Sender: FDA-Public Use
  Company Number: 225614

PATIENT
  Age: 68 Year
  Sex: Male

DRUGS (1)
  1. AVASTIN [Suspect]
     Indication: HEPATIC NEOPLASM MALIGNANT
     Dosage: 420 MG, QD, INTRAVENOUS
     Route: 042

REACTIONS (7)
  - ASCITES INFECTION [None]
  - CONDITION AGGRAVATED [None]
  - GENERAL PHYSICAL HEALTH DETERIORATION [None]
  - HAEMOGLOBIN DECREASED [None]
  - HAEMORRHAGIC ASCITES [None]
  - HEPATIC CIRRHOSIS [None]
  - TUMOUR HAEMORRHAGE [None]
